FAERS Safety Report 6071756-X (Version None)
Quarter: 2009Q1

REPORT INFORMATION
  Report Type: 
  Country: None (occurrence: None)
  Receive Date: 20090209
  Receipt Date: 20090209
  Transmission Date: 20090719
  Serious: Yes (Disabling, Other)
  Sender: FDA-Public Use
  Company Number: None

PATIENT
  Sex: Female
  Weight: 50.8029 kg

DRUGS (2)
  1. KADIAN [Suspect]
     Indication: FIBROMYALGIA
     Dosage: 100 MGM Q12 HOUR ORAL MOUTH
     Route: 048
     Dates: start: 20040501, end: 20071201
  2. OXYCONTIN [Suspect]
     Indication: FIBROMYALGIA
     Dosage: 30 MGM Q6 HOUR PRN ORAL MOUTH
     Route: 048
     Dates: start: 20040501, end: 20071201

REACTIONS (10)
  - AMNESIA [None]
  - AORTIC ANEURYSM [None]
  - CONVULSION [None]
  - ELECTROENCEPHALOGRAM ABNORMAL [None]
  - MELAENA [None]
  - STARING [None]
  - UNRESPONSIVE TO STIMULI [None]
  - UPPER LIMB FRACTURE [None]
  - VICTIM OF ABUSE [None]
  - WEIGHT DECREASED [None]
